FAERS Safety Report 8932263 (Version 3)
Quarter: 2013Q1

REPORT INFORMATION
  Report Type: Spontaneous
  Country: US (occurrence: US)
  Receive Date: 20121128
  Receipt Date: 20130311
  Transmission Date: 20140127
  Serious: Yes (Death, Other)
  Sender: FDA-Public Use
  Company Number: US-PFIZER INC-2012296124

PATIENT
  Age: 72 Year
  Sex: Female

DRUGS (3)
  1. REVATIO [Suspect]
     Indication: PULMONARY HYPERTENSION
     Dosage: 20 MG, 3X/DAY
     Route: 048
     Dates: start: 20071211
  2. BUMEX [Concomitant]
     Indication: CARDIAC DISORDER
     Dosage: UNK
  3. BUMEX [Concomitant]
     Indication: BLOOD PRESSURE ABNORMAL

REACTIONS (1)
  - Myocardial infarction [Fatal]
